FAERS Safety Report 17931494 (Version 3)
Quarter: 2020Q3

REPORT INFORMATION
  Report Type: Report from Study
  Country: US (occurrence: US)
  Receive Date: 20200624
  Receipt Date: 20200820
  Transmission Date: 20201103
  Serious: No
  Sender: FDA-Public Use
  Company Number: NVSC2020US175829

PATIENT
  Age: 30 Year
  Sex: Male

DRUGS (1)
  1. COSENTYX [Suspect]
     Active Substance: SECUKINUMAB
     Indication: ANKYLOSING SPONDYLITIS
     Dosage: 150 MG, UNKNOWN
     Route: 065

REACTIONS (5)
  - Fatigue [Unknown]
  - Hepatic enzyme abnormal [Unknown]
  - Therapeutic product effect decreased [Unknown]
  - Feeling abnormal [Unknown]
  - Haematocrit increased [Unknown]
